FAERS Safety Report 13836381 (Version 1)
Quarter: 2017Q3

REPORT INFORMATION
  Report Type: Report from Study
  Country: HU (occurrence: HU)
  Receive Date: 20170804
  Receipt Date: 20170804
  Transmission Date: 20171127
  Serious: Yes (Life-Threatening, Hospitalization, Other)
  Sender: FDA-Public Use
  Company Number: PHHO2010HU17146

PATIENT

DRUGS (7)
  1. LCZ696 [Suspect]
     Active Substance: SACUBITRIL\VALSARTAN
     Dosage: 200 MG, BID
     Route: 048
     Dates: start: 20101027, end: 20101112
  2. ACENOCOUMAROL [Suspect]
     Active Substance: ACENOCOUMAROL
     Dosage: 2 MG, ONCE/SINGLE
     Route: 048
     Dates: start: 20101113
  3. NO TREATMENT RECEIVED [Suspect]
     Active Substance: UNSPECIFIED INGREDIENT
     Dosage: NO TREATMENT
     Route: 048
  4. LCZ696 [Suspect]
     Active Substance: SACUBITRIL\VALSARTAN
     Indication: CARDIAC FAILURE CHRONIC
     Dosage: 100 MG, BID
     Route: 048
     Dates: start: 20101014, end: 20101026
  5. COMPARATOR ENALAPRIL [Suspect]
     Active Substance: ENALAPRIL
     Indication: CARDIAC FAILURE CHRONIC
     Dosage: 10 MG, BID
     Route: 048
     Dates: start: 20100929, end: 20101012
  6. LCZ696 [Suspect]
     Active Substance: SACUBITRIL\VALSARTAN
     Dosage: 100 MG, BID
     Route: 048
     Dates: start: 20101118
  7. ACENOCOUMAROL [Suspect]
     Active Substance: ACENOCOUMAROL
     Indication: ATRIAL FIBRILLATION
     Dosage: 2 MG, ONCE/SINGLE
     Route: 048
     Dates: start: 20100204, end: 20101112

REACTIONS (8)
  - Melaena [Recovered/Resolved]
  - Duodenal ulcer [Recovered/Resolved]
  - Dizziness [Recovering/Resolving]
  - Lung infiltration [Unknown]
  - Haemorrhage [Recovered/Resolved]
  - Asthenia [Recovered/Resolved]
  - Duodenitis [Recovering/Resolving]
  - Gastritis erosive [Recovered/Resolved]

NARRATIVE: CASE EVENT DATE: 20101111
